FAERS Safety Report 5537159-9 (Version None)
Quarter: 2007Q4

REPORT INFORMATION
  Report Type: 
  Country: None (occurrence: None)
  Receive Date: 20071207
  Receipt Date: 20061130
  Transmission Date: 20080405
  Serious: Yes (Other)
  Sender: FDA-Public Use
  Company Number: US-AMGEN-KDL200701

PATIENT
  Sex: Female

DRUGS (3)
  1. ENBREL [Suspect]
     Indication: PSORIATIC ARTHROPATHY
     Route: 058
     Dates: start: 20051201
  2. ENBREL [Suspect]
     Indication: PSORIASIS
  3. RELAFEN [Concomitant]
     Dates: start: 20061127

REACTIONS (1)
  - INFECTIOUS MONONUCLEOSIS [None]
